FAERS Safety Report 8780377 (Version 1)
Quarter: 2012Q4

REPORT INFORMATION
  Report Type: Spontaneous
  Country: US (occurrence: None)
  Receive Date: 20120905
  Receipt Date: 20120905
  Transmission Date: 20130627
  Serious: Yes (Hospitalization)
  Sender: FDA-Public Use
  Company Number: None

PATIENT
  Age: 55 Year
  Sex: Male
  Weight: 128.82 kg

DRUGS (1)
  1. ENALAPRIL [Suspect]
     Route: 048

REACTIONS (4)
  - Respiratory distress [None]
  - Local swelling [None]
  - Swollen tongue [None]
  - Endotracheal intubation complication [None]
